FAERS Safety Report 4476372-9 (Version None)
Quarter: 2004Q4

REPORT INFORMATION
  Report Type: 
  Country: None (occurrence: None)
  Receive Date: 20041016
  Receipt Date: 20041002
  Transmission Date: 20050328
  Serious: Yes (Hospitalization)
  Sender: FDA-Public Use
  Company Number: ES-MERCK-0410ESP00013

PATIENT
  Age: 58 Year
  Sex: Male
  Weight: 67 kg

DRUGS (5)
  1. [THERAPY UNSPECIFIED] [Concomitant]
     Indication: INTERVERTEBRAL DISC PROTRUSION
     Route: 048
  2. [THERAPY UNSPECIFIED] [Concomitant]
     Route: 065
  3. VIOXX [Suspect]
     Indication: INTERVERTEBRAL DISC PROTRUSION
     Route: 048
     Dates: start: 20030201
  4. VIOXX [Suspect]
     Route: 048
     Dates: start: 20030101, end: 20031001
  5. TOPIRAMATE [Concomitant]
     Route: 048

REACTIONS (1)
  - MYOCARDIAL INFARCTION [None]
